FAERS Safety Report 11507709 (Version 1)
Quarter: 2015Q3

REPORT INFORMATION
  Report Type: Spontaneous
  Country: US (occurrence: None)
  Receive Date: 20150914
  Receipt Date: 20150914
  Transmission Date: 20151125
  Serious: No
  Sender: FDA-Public Use
  Company Number: None

PATIENT
  Age: 60 Year
  Sex: Female
  Weight: 75.3 kg

DRUGS (1)
  1. COLGATE OPTIC WHITE PLATINUM EXPRESS WHITE FRESH MINT [Suspect]
     Active Substance: SODIUM MONOFLUOROPHOSPHATE
     Indication: DENTAL CARE
     Dosage: SMALL AMT  TWICE DAILY  NOT INGESTED
     Dates: start: 20150906, end: 20150912

REACTIONS (3)
  - Swelling face [None]
  - Lip swelling [None]
  - Gingival pain [None]

NARRATIVE: CASE EVENT DATE: 20150913
